FAERS Safety Report 4619464-3 (Version None)
Quarter: 2005Q1

REPORT INFORMATION
  Report Type: 
  Country: None (occurrence: None)
  Receive Date: 20050324
  Receipt Date: 20050303
  Transmission Date: 20050727
  Serious: Yes (Hospitalization)
  Sender: FDA-Public Use
  Company Number: USA050392344

PATIENT

DRUGS (1)
  1. CYMBALTA [Suspect]

REACTIONS (1)
  - HEPATIC ENZYME INCREASED [None]
